FAERS Safety Report 12614609 (Version 1)
Quarter: 2016Q3

REPORT INFORMATION
  Report Type: Spontaneous
  Country: CA (occurrence: CA)
  Receive Date: 20160802
  Receipt Date: 20160802
  Transmission Date: 20161109
  Serious: Yes (Hospitalization, Other)
  Sender: FDA-Public Use
  Company Number: CA-PFIZER INC-2016364714

PATIENT
  Age: 37 Year
  Sex: Male

DRUGS (2)
  1. INSULIN [Concomitant]
     Active Substance: INSULIN NOS
     Dosage: UNK, QD
     Dates: start: 2009
  2. TECTA [Suspect]
     Active Substance: PANTOPRAZOLE MAGNESIUM
     Dosage: 300 MG, Q8WEEKS
     Route: 065
     Dates: start: 2009

REACTIONS (8)
  - Liver transplant [Unknown]
  - Colitis [Unknown]
  - Irritable bowel syndrome [Unknown]
  - Diabetes mellitus [Unknown]
  - Transfusion [Unknown]
  - Frequent bowel movements [Unknown]
  - Anaemia [Unknown]
  - Gastrointestinal disorder [Unknown]

NARRATIVE: CASE EVENT DATE: 2009
